FAERS Safety Report 6873358-1 (Version None)
Quarter: 2010Q3

REPORT INFORMATION
  Report Type: 
  Country: None (occurrence: None)
  Receive Date: 20100723
  Receipt Date: 20090104
  Transmission Date: 20110219
  Serious: No
  Sender: FDA-Public Use
  Company Number: US-PFIZER INC-2009151493

PATIENT
  Sex: Female
  Weight: 81.633 kg

DRUGS (4)
  1. CHANTIX [Suspect]
     Indication: SMOKING CESSATION THERAPY
     Dosage: 1 MG, 2X/DAY
     Route: 048
     Dates: start: 20081201
  2. LEXAPRO [Concomitant]
     Dosage: UNK
     Route: 048
  3. GABAPENTIN [Concomitant]
     Indication: NERVOUS SYSTEM DISORDER
     Dosage: UNK
     Route: 048
  4. BUPRENORPHINE HCL AND NALOXONE HCL [Concomitant]
     Dosage: UNK
     Route: 048

REACTIONS (2)
  - BACK PAIN [None]
  - SKIN IRRITATION [None]
